FAERS Safety Report 14852168 (Version 1)
Quarter: 2018Q2

REPORT INFORMATION
  Report Type: Spontaneous
  Country: US (occurrence: US)
  Receive Date: 20180419
  Receipt Date: 20180419
  Transmission Date: 20180711
  Serious: Yes (Death)
  Sender: FDA-Public Use
  Company Number: None

PATIENT
  Age: 54 Year
  Sex: Female

DRUGS (18)
  1. CLARITIN [Concomitant]
     Active Substance: LORATADINE
  2. HYDROMORPHONE HYDROCHLORI [Concomitant]
  3. DYRENIUM [Concomitant]
     Active Substance: TRIAMTERENE
  4. SUBSYS [Concomitant]
     Active Substance: FENTANYL
  5. ZOFRAN [Concomitant]
     Active Substance: ONDANSETRON HYDROCHLORIDE
  6. MORPHINE SULFATE ER [Concomitant]
     Active Substance: MORPHINE SULFATE
  7. HYDROCHOROTHIAZIDE [Concomitant]
     Active Substance: HYDROCHLOROTHIAZIDE
  8. AFINITOR [Suspect]
     Active Substance: EVEROLIMUS
     Indication: UTERINE CANCER
     Route: 048
     Dates: start: 20180308, end: 20180329
  9. MEGACE ES [Concomitant]
     Active Substance: MEGESTROL ACETATE
  10. ELIQUIS [Concomitant]
     Active Substance: APIXABAN
  11. FEMARA [Concomitant]
     Active Substance: LETROZOLE
  12. TYLENOL [Concomitant]
     Active Substance: ACETAMINOPHEN
  13. LETROZOLE. [Concomitant]
     Active Substance: LETROZOLE
  14. MIRTAZAPINE. [Concomitant]
     Active Substance: MIRTAZAPINE
  15. PROBIOTIC DIGESTIVE SUPPO [Concomitant]
  16. COMPRO [Concomitant]
     Active Substance: PROCHLORPERAZINE
  17. FIBER [Concomitant]
     Active Substance: PSYLLIUM HUSK
  18. LACTULOSE. [Concomitant]
     Active Substance: LACTULOSE

REACTIONS (1)
  - Death [None]

NARRATIVE: CASE EVENT DATE: 20180418
